FAERS Safety Report 22185414 (Version 1)
Quarter: 2023Q2

REPORT INFORMATION
  Report Type: Spontaneous
  Country: US (occurrence: None)
  Receive Date: 20230406
  Receipt Date: 20230406
  Transmission Date: 20230722
  Serious: No
  Sender: FDA-Public Use
  Company Number: None

PATIENT
  Age: 51 Year
  Sex: Male
  Weight: 154.35 kg

DRUGS (4)
  1. PRIVIGEN [Suspect]
     Active Substance: HUMAN IMMUNOGLOBULIN G
     Indication: Chronic inflammatory demyelinating polyradiculoneuropathy
     Route: 042
  2. PRIVIGEN [Suspect]
     Active Substance: HUMAN IMMUNOGLOBULIN G
     Indication: Chronic inflammatory demyelinating polyradiculoneuropathy
     Route: 042
  3. ACETAMINOPHEN 325MG TAB [Concomitant]
  4. DIPHENHYDRAMINE 50MG CAP [Concomitant]

REACTIONS (4)
  - Infusion related reaction [None]
  - Burning sensation [None]
  - Pruritus [None]
  - Erythema [None]

NARRATIVE: CASE EVENT DATE: 20230331
